FAERS Safety Report 6672166-4 (Version None)
Quarter: 2010Q2

REPORT INFORMATION
  Report Type: 
  Country: None (occurrence: None)
  Receive Date: 20100408
  Receipt Date: 20100401
  Transmission Date: 20101027
  Serious: Yes (Hospitalization)
  Sender: FDA-Public Use
  Company Number: US-BIOGENIDEC-2010BI001703

PATIENT
  Age: 58 Year
  Sex: Female

DRUGS (16)
  1. TYSABRI [Suspect]
     Indication: MULTIPLE SCLEROSIS
     Route: 042
     Dates: start: 20091025
  2. COUMADIN [Concomitant]
  3. LOVENOX [Concomitant]
  4. MULTI-VITAMIN [Concomitant]
  5. VITAMIN C [Concomitant]
  6. FLOMAX [Concomitant]
  7. ZANAFLEX [Concomitant]
  8. ZANAFLEX [Concomitant]
  9. VALIUM [Concomitant]
  10. TEGRETOL [Concomitant]
  11. EFFEXOR XR [Concomitant]
  12. LIPITOR [Concomitant]
  13. DETROL LA [Concomitant]
  14. RESTORIL [Concomitant]
  15. ACTONEL [Concomitant]
  16. CALCIUM WITH VITAMIN D [Concomitant]

REACTIONS (8)
  - ALLERGIC TRANSFUSION REACTION [None]
  - ASTHENIA [None]
  - CHOLECYSTITIS [None]
  - MUSCLE SPASTICITY [None]
  - PANCREATITIS ACUTE [None]
  - PLEURAL EFFUSION [None]
  - PULMONARY OEDEMA [None]
  - UPPER GASTROINTESTINAL HAEMORRHAGE [None]
